FAERS Safety Report 8267720-2 (Version None)
Quarter: 2012Q2

REPORT INFORMATION
  Report Type: 
  Country: None (occurrence: None)
  Receive Date: 20120404
  Receipt Date: 20120326
  Transmission Date: 20120825
  Serious: Yes (Death)
  Sender: FDA-Public Use
  Company Number: TCI2012A01351

PATIENT
  Age: 91 Year
  Sex: Female

DRUGS (5)
  1. ADALAT [Concomitant]
  2. METOPROLOL TARTRATE [Concomitant]
  3. SONIAS COMBINATION TABLETS LD (PIOGLITAZONE HYDROCHLORIDE, GLIMEPIRIDE [Suspect]
     Indication: TYPE 2 DIABETES MELLITUS
     Dosage: 1 TAB. (1 TAB., 1 IN 1 D), PER ORAL
     Route: 048
     Dates: start: 20111015, end: 20120224
  4. RABEPRAZOLE SODIUM [Concomitant]
  5. OLMESARTAN MEDOXOMIL [Concomitant]

REACTIONS (2)
  - DYSPNOEA [None]
  - SUDDEN DEATH [None]
